FAERS Safety Report 10029670 (Version 1)
Quarter: 2014Q1

REPORT INFORMATION
  Report Type: Spontaneous
  Country: US (occurrence: None)
  Receive Date: 20140321
  Receipt Date: 20140321
  Transmission Date: 20141002
  Serious: Yes (Hospitalization, Disabling)
  Sender: FDA-Public Use
  Company Number: None

PATIENT
  Age: 15 Year
  Sex: Female
  Weight: 47.63 kg

DRUGS (3)
  1. PROZAC [Suspect]
     Indication: DEPRESSION
     Route: 048
     Dates: start: 19990129, end: 19990331
  2. PROZAC [Suspect]
     Indication: DECREASED APPETITE
     Route: 048
     Dates: start: 19990129, end: 19990331
  3. TRAZODONE [Suspect]
     Indication: SLEEP DISORDER
     Route: 048
     Dates: start: 19981230, end: 19990324

REACTIONS (26)
  - Loss of consciousness [None]
  - Head injury [None]
  - Dyskinesia [None]
  - Anxiety [None]
  - Scratch [None]
  - Agitation [None]
  - Overdose [None]
  - Delusion [None]
  - Suicide attempt [None]
  - Suicidal ideation [None]
  - Dizziness [None]
  - Nausea [None]
  - Strabismus [None]
  - Malnutrition [None]
  - Blood glucose decreased [None]
  - Blood thyroid stimulating hormone decreased [None]
  - Decreased appetite [None]
  - Night sweats [None]
  - Convulsion [None]
  - Toxicity to various agents [None]
  - Weight decreased [None]
  - Drug withdrawal syndrome [None]
  - Hypersomnia [None]
  - Drug ineffective [None]
  - Dehydration [None]
  - Anaemia [None]
